FAERS Safety Report 5151250-0 (Version None)
Quarter: 2006Q4

REPORT INFORMATION
  Report Type: 
  Country: None (occurrence: None)
  Receive Date: 20061110
  Receipt Date: 20061110
  Transmission Date: 20070319
  Serious: Yes (Hospitalization)
  Sender: FDA-Public Use
  Company Number: None

PATIENT
  Age: 88 Year
  Sex: Male
  Weight: 69.4 kg

DRUGS (2)
  1. PREDNISONE [Suspect]
     Indication: GOUT
     Dosage: #34, TAPER OVER A  FEW WEEKS PO
     Route: 048
  2. CLOPIDOGREL [Suspect]
     Indication: CORONARY ARTERY DISEASE
     Dosage: 75MG QD PO
     Route: 048

REACTIONS (9)
  - CHEST PAIN [None]
  - DYSPNOEA [None]
  - FAECES DISCOLOURED [None]
  - GASTRITIS [None]
  - GASTROINTESTINAL HAEMORRHAGE [None]
  - GOUT [None]
  - HAEMOGLOBIN DECREASED [None]
  - MELAENA [None]
  - OEDEMA PERIPHERAL [None]
